FAERS Safety Report 8003858-2 (Version None)
Quarter: 2011Q4

REPORT INFORMATION
  Report Type: 
  Country: None (occurrence: None)
  Receive Date: 20111222
  Receipt Date: 20111219
  Transmission Date: 20120403
  Serious: Yes (Hospitalization, Other)
  Sender: FDA-Public Use
  Company Number: US-ROXANE LABORATORIES, INC.-2011-RO-01833RO

PATIENT
  Sex: Male
  Weight: 86 kg

DRUGS (16)
  1. ALBUTEROL [Concomitant]
     Indication: ASTHMA
  2. SIMVASTATIN [Concomitant]
     Indication: DYSLIPIDAEMIA
  3. CARTIA XT [Concomitant]
     Indication: HYPERTENSION
  4. LANTUS [Concomitant]
     Indication: DIABETES MELLITUS
  5. PREDNISONE [Suspect]
     Indication: PROSTATE CANCER
  6. DOCETAXEL [Suspect]
     Indication: PROSTATE CANCER
     Route: 042
  7. METFORMIN HCL [Concomitant]
  8. CARTIA XT [Concomitant]
     Indication: ATRIAL FIBRILLATION
  9. LISINOPRIL [Concomitant]
     Indication: HYPERTENSION
  10. VITAMIN D [Concomitant]
  11. AMIODARONE [Concomitant]
     Indication: ATRIAL FIBRILLATION
  12. INVESTIGATIONAL DRUG [Suspect]
     Indication: PROSTATE CANCER
     Route: 048
  13. WARFARIN SODIUM [Concomitant]
     Dosage: 2.5 MG
  14. WARFARIN SODIUM [Concomitant]
     Dosage: 1.25 MG
  15. SINGULAIR [Concomitant]
     Indication: ASTHMA
  16. HUMALOG [Concomitant]
     Indication: DIABETES MELLITUS

REACTIONS (3)
  - DYSPNOEA [None]
  - CONFUSIONAL STATE [None]
  - LOBAR PNEUMONIA [None]
